FAERS Safety Report 23751465 (Version 2)
Quarter: 2024Q2

REPORT INFORMATION
  Report Type: Spontaneous
  Country: US (occurrence: US)
  Receive Date: 20240417
  Receipt Date: 20240502
  Transmission Date: 20240715
  Serious: Yes (Other)
  Sender: FDA-Public Use
  Company Number: US-AMERICAN REGENT INC-2024001330

PATIENT
  Age: 77 Year
  Sex: Male

DRUGS (2)
  1. ADENOSINE [Suspect]
     Active Substance: ADENOSINE
     Indication: Tachycardia
     Dosage: 6 MILLIGRAM, SINGLE
     Route: 065
     Dates: start: 20231013, end: 20231013
  2. ADENOSINE [Suspect]
     Active Substance: ADENOSINE
     Dosage: 12 MILLIGRAM, SINGLE
     Route: 065
     Dates: start: 20231013, end: 20231013

REACTIONS (4)
  - Coronary steal syndrome [Recovered/Resolved]
  - Ventricular fibrillation [Recovered/Resolved]
  - Cardiac arrest [Recovered/Resolved]
  - Product use in unapproved indication [Unknown]

NARRATIVE: CASE EVENT DATE: 20231013
